FAERS Safety Report 12600476 (Version 2)
Quarter: 2016Q3

REPORT INFORMATION
  Report Type: Spontaneous
  Country: BR (occurrence: BR)
  Receive Date: 20160727
  Receipt Date: 20160920
  Transmission Date: 20161109
  Serious: Yes (Other)
  Sender: FDA-Public Use
  Company Number: BR-PFIZER INC-2015335248

PATIENT
  Age: 42 Year
  Sex: Female

DRUGS (6)
  1. FRAGMIN [Suspect]
     Active Substance: DALTEPARIN SODIUM
     Dosage: 5000 IU, UNK
     Dates: start: 201508
  2. FOLIC ACID. [Concomitant]
     Active Substance: FOLIC ACID
     Indication: HYPERCOAGULATION
     Dosage: UNK
     Dates: start: 201506, end: 201511
  3. VITAMIN K [Concomitant]
     Active Substance: PHYTONADIONE
     Indication: HYPERCOAGULATION
     Dosage: UNK
     Dates: start: 201506, end: 201511
  4. CALCIUM [Concomitant]
     Active Substance: CALCIUM
     Indication: HYPERCOAGULATION
     Dosage: UNK
     Dates: start: 201506, end: 201511
  5. FRAGMIN [Suspect]
     Active Substance: DALTEPARIN SODIUM
     Indication: HYPERCOAGULATION
     Dosage: 2500 IU, UNK
     Dates: start: 201506
  6. SOMALGIN CARDIO [Concomitant]
     Active Substance: ASPIRIN\DIHYDROXYALUMINUM AMINOACETATE ANHYDROUS\MAGNESIUM CARBONATE
     Indication: HYPERCOAGULATION
     Dosage: UNK IU, UNK
     Dates: start: 201506, end: 201511

REACTIONS (1)
  - Abortion spontaneous [Recovered/Resolved]

NARRATIVE: CASE EVENT DATE: 201511
